FAERS Safety Report 21053151 (Version 1)
Quarter: 2022Q3

REPORT INFORMATION
  Report Type: Report from Study
  Country: US (occurrence: US)
  Receive Date: 20220707
  Receipt Date: 20220707
  Transmission Date: 20221027
  Serious: Yes (Other)
  Sender: FDA-Public Use
  Company Number: US-SA-2022SA254450

PATIENT

DRUGS (2)
  1. KETOROLAC [Suspect]
     Active Substance: KETOROLAC TROMETHAMINE
     Indication: Procedural pain
     Dosage: 0.5 MG/KG, Q6H
  2. HYDROCORTISONE [Suspect]
     Active Substance: HYDROCORTISONE

REACTIONS (1)
  - Haemorrhagic diathesis [Unknown]
